FAERS Safety Report 19798721 (Version 2)
Quarter: 2022Q2

REPORT INFORMATION
  Report Type: Spontaneous
  Country: CA (occurrence: CA)
  Receive Date: 20210907
  Receipt Date: 20220408
  Transmission Date: 20220721
  Serious: Yes (Other)
  Sender: FDA-Public Use
  Company Number: CA-PFIZER INC-202101098005

PATIENT
  Age: 74 Year
  Sex: Male
  Weight: 54.4 kg

DRUGS (2)
  1. XELJANZ [Interacting]
     Active Substance: TOFACITINIB CITRATE
     Indication: Rheumatoid arthritis
     Dosage: 5 MG, TWICE A DAY
     Route: 048
     Dates: start: 20161222
  2. LEFLUNOMIDE [Interacting]
     Active Substance: LEFLUNOMIDE
     Indication: Rheumatoid arthritis
     Dosage: 20 MG, 1X/DAY
     Route: 048

REACTIONS (7)
  - Lung disorder [Unknown]
  - Pneumonia [Unknown]
  - Infection [Not Recovered/Not Resolved]
  - C-reactive protein increased [Not Recovered/Not Resolved]
  - Condition aggravated [Unknown]
  - Drug interaction [Unknown]
  - Product prescribing issue [Unknown]
